FAERS Safety Report 23961501 (Version 1)
Quarter: 2024Q2

REPORT INFORMATION
  Report Type: Spontaneous
  Country: CN (occurrence: None)
  Receive Date: 20240611
  Receipt Date: 20240611
  Transmission Date: 20240716
  Serious: Yes (Hospitalization)
  Sender: FDA-Public Use
  Company Number: CN-ROCHE-3576208

PATIENT
  Age: 41 Year
  Sex: Female
  Weight: 52 kg

DRUGS (4)
  1. CADONILIMAB [Suspect]
     Active Substance: CADONILIMAB
     Indication: Cervix carcinoma
     Route: 041
     Dates: start: 20240514, end: 20240514
  2. AVASTIN [Suspect]
     Active Substance: BEVACIZUMAB
     Indication: Cervix carcinoma
     Route: 041
     Dates: start: 20240514, end: 20240514
  3. SODIUM CHLORIDE [Concomitant]
     Active Substance: SODIUM CHLORIDE
     Route: 041
     Dates: start: 20240514, end: 20240514
  4. SODIUM CHLORIDE [Concomitant]
     Active Substance: SODIUM CHLORIDE
     Route: 041
     Dates: start: 20240514, end: 20240514

REACTIONS (2)
  - Drug eruption [Recovering/Resolving]
  - Pyrexia [Recovering/Resolving]

NARRATIVE: CASE EVENT DATE: 20240522
